FAERS Safety Report 8811165 (Version 1)
Quarter: 2012Q4

REPORT INFORMATION
  Report Type: 
  Country: US (occurrence: US)
  Receive Date: 20120927
  Receipt Date: 20120927
  Transmission Date: 20130627
  Serious: Yes (Hospitalization)
  Sender: FDA-Public Use
  Company Number: US-BAYER-2012-100415

PATIENT
  Age: 40 Year
  Sex: Female
  Weight: 80 kg

DRUGS (7)
  1. YAZ [Suspect]
  2. GIANVI [Suspect]
  3. METRONIDAZOLE [Concomitant]
  4. FOLIC ACID [Concomitant]
  5. TYLENOL [Concomitant]
  6. VICODIN [Concomitant]
  7. CYANOCOBALAMIN [Concomitant]

REACTIONS (1)
  - Pulmonary embolism [None]
